FAERS Safety Report 24091312 (Version 1)
Quarter: 2024Q3

REPORT INFORMATION
  Report Type: Spontaneous
  Country: BR (occurrence: BR)
  Receive Date: 20240715
  Receipt Date: 20240715
  Transmission Date: 20241017
  Serious: Yes (Death, Other)
  Sender: DAIICHI
  Company Number: BR-DSJP-DSE-2024-135596

PATIENT
  Age: 60 Year
  Sex: Male

DRUGS (4)
  1. ENHERTU [Suspect]
     Active Substance: FAM-TRASTUZUMAB DERUXTECAN-NXKI
     Indication: Tumour of ampulla of Vater
     Dosage: UNK
     Route: 065
  2. AFATINIB [Suspect]
     Active Substance: AFATINIB
     Indication: Tumour of ampulla of Vater
     Dosage: UNK
     Route: 065
  3. FLUOROURACIL\LEUCOVORIN CALCIUM\OXALIPLATIN [Suspect]
     Active Substance: FLUOROURACIL\LEUCOVORIN CALCIUM\OXALIPLATIN
     Indication: Tumour of ampulla of Vater
     Dosage: UNK
     Route: 065
  4. TUCATINIB [Suspect]
     Active Substance: TUCATINIB
     Indication: Tumour of ampulla of Vater
     Dosage: UNK
     Route: 065

REACTIONS (3)
  - Gastrointestinal haemorrhage [Fatal]
  - Disease progression [Unknown]
  - Therapeutic product effect incomplete [Unknown]
